FAERS Safety Report 8936490 (Version 2)
Quarter: 2012Q4

REPORT INFORMATION
  Report Type: 
  Country: FR (occurrence: FR)
  Receive Date: 20121130
  Receipt Date: 20121221
  Transmission Date: 20130627
  Serious: Yes (Other)
  Sender: FDA-Public Use
  Company Number: FR-NOVOPROD-365041

PATIENT
  Age: 58 Year
  Sex: Female

DRUGS (7)
  1. VICTOZA [Suspect]
     Indication: DIABETES MELLITUS
     Dosage: 0.6 mg, qd
     Route: 058
     Dates: start: 20121008, end: 20121014
  2. VICTOZA [Suspect]
     Dosage: 1.2 mg, qd
     Route: 058
     Dates: start: 20121015, end: 20121019
  3. LEVOTHYROX [Suspect]
     Indication: THYROIDITIS
     Dosage: 150 ?g, qd
     Route: 048
  4. LEVOTHYROX [Suspect]
     Dosage: 125 ?g, qd
     Dates: start: 20121008
  5. LEVOTHYROX [Suspect]
     Dosage: 150 ?g, qd
  6. METFORMINE [Concomitant]
     Indication: DIABETES MELLITUS
     Route: 048
  7. CIPROFIBRATE [Concomitant]
     Indication: DYSLIPIDAEMIA
     Dosage: 100 mg, qd
     Route: 048

REACTIONS (3)
  - Anxiety [Not Recovered/Not Resolved]
  - Dyspnoea [Not Recovered/Not Resolved]
  - Chest discomfort [Not Recovered/Not Resolved]
